FAERS Safety Report 12620227 (Version 1)
Quarter: 2016Q3

REPORT INFORMATION
  Report Type: Spontaneous
  Country: GB (occurrence: GB)
  Receive Date: 20160803
  Receipt Date: 20160803
  Transmission Date: 20161109
  Serious: Yes (Hospitalization, Other)
  Sender: FDA-Public Use
  Company Number: GB-TEVA-679683ACC

PATIENT
  Age: 78 Year
  Sex: Female

DRUGS (1)
  1. BUMETANIDE. [Suspect]
     Active Substance: BUMETANIDE
     Indication: CARDIAC FAILURE CHRONIC
     Dosage: 4 MILLIGRAM DAILY;
     Route: 048
     Dates: start: 201512, end: 201606

REACTIONS (4)
  - Hyponatraemia [Recovered/Resolved]
  - Nausea [Unknown]
  - Muscle spasms [Unknown]
  - Lethargy [Unknown]

NARRATIVE: CASE EVENT DATE: 201606
